FAERS Safety Report 9344260 (Version 2)
Quarter: 2013Q2

REPORT INFORMATION
  Report Type: Spontaneous
  Country: US (occurrence: None)
  Receive Date: 20130610
  Receipt Date: 20130619
  Transmission Date: 20140414
  Serious: Yes (Other)
  Sender: FDA-Public Use
  Company Number: JPI-P-032599

PATIENT
  Age: 48 Year
  Sex: Female
  Weight: 83.92 kg

DRUGS (3)
  1. XYREM (500 MILLIGRAM/MILLILITERS, SOLUTION) (SODIUM OXYBATE) [Suspect]
     Indication: NARCOLEPSY
     Dosage: 6 GM (3 GM, 2 IN 1 D),ORAL
     Route: 048
     Dates: start: 20130405, end: 20130526
  2. XYREM (500 MILLIGRAM/MILLILITERS, SOLUTION) (SODIUM OXYBATE) [Suspect]
     Indication: SOMNOLENCE
     Dosage: 6 GM (3 GM, 2 IN 1 D),ORAL
     Route: 048
     Dates: start: 20130405, end: 20130526
  3. UNSPECIFIED MEDICATIONS [Concomitant]

REACTIONS (4)
  - Pyelonephritis [None]
  - Urinary tract infection [None]
  - Flank pain [None]
  - Nephrolithiasis [None]
